FAERS Safety Report 7442485-2 (Version None)
Quarter: 2011Q2

REPORT INFORMATION
  Report Type: 
  Country: None (occurrence: None)
  Receive Date: 20110428
  Receipt Date: 20110419
  Transmission Date: 20111010
  Serious: Yes (Death)
  Sender: FDA-Public Use
  Company Number: DE-ROCHE-773434

PATIENT
  Age: 62 Year
  Sex: Male
  Weight: 80 kg

DRUGS (3)
  1. CISPLATIN [Concomitant]
     Dates: start: 20101011, end: 20110119
  2. BEVACIZUMAB [Suspect]
     Route: 042
     Dates: start: 20101011, end: 20110119
  3. GEMZAR [Concomitant]
     Dates: start: 20101011, end: 20110119

REACTIONS (1)
  - NEOPLASM MALIGNANT [None]
